FAERS Safety Report 19437763 (Version 3)
Quarter: 2021Q3

REPORT INFORMATION
  Report Type: Report from Study
  Country: None (occurrence: BE)
  Receive Date: 20210619
  Receipt Date: 20210705
  Transmission Date: 20211014
  Serious: Yes (Other)
  Sender: FDA-Public Use
  Company Number: BE-ABBVIE-21K-013-3925737-00

PATIENT
  Sex: Female
  Weight: 72 kg

DRUGS (6)
  1. DUODOPA [Suspect]
     Active Substance: CARBIDOPA\LEVODOPA
     Indication: PARKINSON^S DISEASE
     Route: 050
     Dates: start: 20140811
  2. DUODOPA [Suspect]
     Active Substance: CARBIDOPA\LEVODOPA
     Dosage: MD 5.5 ML; CD 2.8 ML/HR DURING 16 HOURS; ED 2.2 ML
     Route: 050
     Dates: start: 20201201, end: 20210408
  3. PROLOPA [Concomitant]
     Active Substance: BENSERAZIDE\LEVODOPA
     Indication: PRODUCT USED FOR UNKNOWN INDICATION
     Dosage: PROLOPA COMPR.?HALF A TABLET?4 TIMES A DAY, EVERY FOUR HOURS
  4. DUODOPA [Suspect]
     Active Substance: CARBIDOPA\LEVODOPA
     Dosage: MD 5.5 ML; CD 2.7 ML/HR DURING 16 HOURS; ED 2.0 ML
     Route: 050
     Dates: start: 20210408
  5. MIRAPEXIN [Concomitant]
     Active Substance: PRAMIPEXOLE
     Indication: PRODUCT USED FOR UNKNOWN INDICATION
     Dosage: MIRAPEXIN 3.15?ONE IN THE MORNING
  6. PROLOPA [Concomitant]
     Active Substance: BENSERAZIDE\LEVODOPA
     Indication: PRODUCT USED FOR UNKNOWN INDICATION
     Dosage: ONE IN THE MORNING

REACTIONS (2)
  - Embedded device [Unknown]
  - Device difficult to use [Recovered/Resolved]
